FAERS Safety Report 8169866-6 (Version None)
Quarter: 2012Q1

REPORT INFORMATION
  Report Type: 
  Country: None (occurrence: None)
  Receive Date: 20120105
  Receipt Date: 20101103
  Transmission Date: 20120608
  Serious: Yes (Life-Threatening, Hospitalization)
  Sender: FDA-Public Use
  Company Number: US-005456

PATIENT
  Age: 77 Year
  Sex: Male
  Weight: 89 kg

DRUGS (8)
  1. SIMVASTATIN [Concomitant]
  2. ASCORBIC ACID [Concomitant]
  3. OMEPRAZOLE [Concomitant]
  4. PROHANCE [Suspect]
     Indication: NUCLEAR MAGNETIC RESONANCE IMAGING BRAIN
     Dosage: 20ML ONCE INTRAVENOUS (NOT OTHERWISE SPECIFIED)
     Route: 042
     Dates: start: 20101102, end: 20101102
  5. PROHANCE [Suspect]
     Indication: LUNG CANCER METASTATIC
     Dosage: 20ML ONCE INTRAVENOUS (NOT OTHERWISE SPECIFIED)
     Route: 042
     Dates: start: 20101102, end: 20101102
  6. COREG [Concomitant]
  7. ASPIRIN [Concomitant]
  8. RAMIPRIL [Concomitant]

REACTIONS (2)
  - CARDIAC ARREST [None]
  - ANAPHYLACTIC REACTION [None]
